FAERS Safety Report 6386167-7 (Version None)
Quarter: 2009Q4

REPORT INFORMATION
  Report Type: 
  Country: None (occurrence: None)
  Receive Date: 20091002
  Receipt Date: 20081124
  Transmission Date: 20100525
  Serious: No
  Sender: FDA-Public Use
  Company Number: US-ASTRAZENECA-2008UW26284

PATIENT
  Age: 55 Year
  Sex: Female
  Weight: 70.3 kg

DRUGS (4)
  1. ARIMIDEX [Suspect]
     Indication: PROPHYLAXIS
     Route: 048
     Dates: start: 20080701
  2. VITAMIN D [Concomitant]
     Dosage: 400 IU
  3. LOVAZA [Concomitant]
  4. VITAMIN SUPPLIMENTS [Concomitant]

REACTIONS (3)
  - ALOPECIA [None]
  - SEBACEOUS GLANDS OVERACTIVITY [None]
  - SKIN WRINKLING [None]
